FAERS Safety Report 12373070 (Version 1)
Quarter: 2016Q2

REPORT INFORMATION
  Report Type: Report from Study
  Country: US (occurrence: US)
  Receive Date: 20160516
  Receipt Date: 20160516
  Transmission Date: 20160815
  Serious: Yes (Hospitalization)
  Sender: FDA-Public Use
  Company Number: US-MALLINCKRODT-T201600335

PATIENT
  Age: 74 Year
  Sex: Male
  Weight: 91 kg

DRUGS (11)
  1. PREDNISONE. [Concomitant]
     Active Substance: PREDNISONE
     Indication: PULMONARY SARCOIDOSIS
     Dosage: 10 MG
     Route: 048
     Dates: end: 201601
  2. NORVASC [Concomitant]
     Active Substance: AMLODIPINE BESYLATE
  3. RENVELA [Concomitant]
     Active Substance: SEVELAMER CARBONATE
  4. ZETIA [Concomitant]
     Active Substance: EZETIMIBE
  5. FLOVENT [Concomitant]
     Active Substance: FLUTICASONE PROPIONATE
  6. REPOSITORY CORTICOTROPIN INJECTION [Suspect]
     Active Substance: CORTICOTROPIN
     Indication: PULMONARY SARCOIDOSIS
     Dosage: 40 UNITS EVERY 3 DAYS
     Route: 030
     Dates: start: 20160118, end: 20160125
  7. DIOVAN [Concomitant]
     Active Substance: VALSARTAN
  8. CRESTOR [Concomitant]
     Active Substance: ROSUVASTATIN CALCIUM
  9. ASPIRIN. [Concomitant]
     Active Substance: ASPIRIN
  10. PREDNISONE. [Concomitant]
     Active Substance: PREDNISONE
     Dosage: TAPERED AND WEANED OFF
     Route: 048
     Dates: start: 201601, end: 201601
  11. ALLOPURINOL. [Concomitant]
     Active Substance: ALLOPURINOL

REACTIONS (3)
  - Muscular weakness [Recovering/Resolving]
  - Groin pain [Recovered/Resolved]
  - Bronchitis [Recovering/Resolving]

NARRATIVE: CASE EVENT DATE: 20160122
